FAERS Safety Report 10171771 (Version 2)
Quarter: 2014Q3

REPORT INFORMATION
  Report Type: Report from Study
  Country: EG (occurrence: EG)
  Receive Date: 20140514
  Receipt Date: 20140813
  Transmission Date: 20150326
  Serious: Yes (Life-Threatening)
  Sender: FDA-Public Use
  Company Number: EG-SA-2014SA059959

PATIENT
  Age: 19 Year
  Sex: Female

DRUGS (1)
  1. LANTUS [Suspect]
     Active Substance: INSULIN GLARGINE
     Indication: TYPE 1 DIABETES MELLITUS
     Route: 058
     Dates: start: 20131221

REACTIONS (2)
  - Hyperglycaemia [Not Recovered/Not Resolved]
  - Urine ketone body present [Recovering/Resolving]

NARRATIVE: CASE EVENT DATE: 20140505
